FAERS Safety Report 6751170-1 (Version None)
Quarter: 2010Q2

REPORT INFORMATION
  Report Type: 
  Country: None (occurrence: None)
  Receive Date: 20100602
  Receipt Date: 20100531
  Transmission Date: 20101027
  Serious: Yes (Hospitalization)
  Sender: FDA-Public Use
  Company Number: FR-BRISTOL-MYERS SQUIBB COMPANY-15126733

PATIENT
  Age: 54 Year
  Sex: Male

DRUGS (3)
  1. REYATAZ [Suspect]
     Indication: HIV INFECTION
     Route: 048
     Dates: start: 20071119, end: 20100112
  2. WELLVONE [Suspect]
  3. KIVEXA [Suspect]

REACTIONS (1)
  - CYTOLYTIC HEPATITIS [None]
